FAERS Safety Report 4389425-0 (Version None)
Quarter: 2004Q2

REPORT INFORMATION
  Report Type: 
  Country: None (occurrence: None)
  Receive Date: 20040628
  Receipt Date: 20040617
  Transmission Date: 20050107
  Serious: Yes (Hospitalization)
  Sender: FDA-Public Use
  Company Number: US-JNJFOC-20040305475

PATIENT
  Age: 63 Year
  Sex: Female
  Weight: 63.5036 kg

DRUGS (8)
  1. DURAGESIC [Suspect]
     Indication: PAIN
     Dosage: SEE IMAGE
     Route: 062
     Dates: start: 20040101, end: 20040301
  2. DURAGESIC [Suspect]
     Indication: PAIN
     Dosage: SEE IMAGE
     Route: 062
     Dates: start: 20040320, end: 20040521
  3. LOPRESSOR [Concomitant]
  4. NORVASC (TABLETS) AMLODIPINE BESILATE [Concomitant]
  5. ECOTRIN (ACETYLSALICYLIC ACID) TABLETS [Concomitant]
  6. ZOLOFT [Concomitant]
  7. RAMAPRIL (RAMIPRIL) [Concomitant]
  8. PLAVIX [Concomitant]

REACTIONS (9)
  - BACK PAIN [None]
  - CONDITION AGGRAVATED [None]
  - DEHYDRATION [None]
  - DEPRESSION [None]
  - FATIGUE [None]
  - HYPOTENSION [None]
  - MALNUTRITION [None]
  - NIGHT SWEATS [None]
  - SOMNOLENCE [None]
